FAERS Safety Report 8268773-8 (Version None)
Quarter: 2012Q2

REPORT INFORMATION
  Report Type: 
  Country: None (occurrence: None)
  Receive Date: 20120409
  Receipt Date: 20120409
  Transmission Date: 20120825
  Serious: Yes (Other)
  Sender: FDA-Public Use
  Company Number: None

PATIENT
  Sex: Female
  Weight: 52.163 kg

DRUGS (1)
  1. OMEPRAZOLE MAGNESIUM [Suspect]
     Indication: GASTROOESOPHAGEAL REFLUX DISEASE
     Dosage: 1 CAPSULES
     Route: 048
     Dates: start: 20111115, end: 20120325

REACTIONS (5)
  - MEDICATION RESIDUE [None]
  - GASTRIC MUCOSA ERYTHEMA [None]
  - PRODUCT SOLUBILITY ABNORMAL [None]
  - PRODUCT QUALITY ISSUE [None]
  - DRUG INEFFECTIVE [None]
